FAERS Safety Report 10223930 (Version 3)
Quarter: 2014Q3

REPORT INFORMATION
  Report Type: Spontaneous
  Country: AU (occurrence: AU)
  Receive Date: 20140609
  Receipt Date: 20140721
  Transmission Date: 20150326
  Serious: Yes (Death, Other)
  Sender: FDA-Public Use
  Company Number: AU-JNJFOC-20140518694

PATIENT
  Sex: Female
  Weight: 3.5 kg

DRUGS (4)
  1. STELARA [Suspect]
     Active Substance: USTEKINUMAB
     Indication: PSORIASIS
     Dosage: FATHER^S DOSING; 45 MG SINCE MAR 2013
     Route: 064
  2. PARACETAMOL [Suspect]
     Active Substance: ACETAMINOPHEN
     Indication: HEADACHE
     Route: 064
  3. PARACETAMOL [Suspect]
     Active Substance: ACETAMINOPHEN
     Route: 064
  4. PETHIDINE [Suspect]
     Active Substance: MEPERIDINE
     Indication: PAIN
     Route: 064
     Dates: start: 20140417, end: 20140417

REACTIONS (2)
  - Foetal exposure during pregnancy [Recovered/Resolved]
  - Death [Fatal]
